FAERS Safety Report 8964925 (Version 1)
Quarter: 2012Q4

REPORT INFORMATION
  Report Type: 
  Country: GR (occurrence: GR)
  Receive Date: 20121214
  Receipt Date: 20121214
  Transmission Date: 20130627
  Serious: Yes (Hospitalization)
  Sender: FDA-Public Use
  Company Number: GR-PERRIGO-12GR010411

PATIENT
  Age: 45 Year
  Sex: Female

DRUGS (2)
  1. MESALAMINE [Suspect]
     Indication: COLITIS ULCERATIVE
     Dosage: 500 mg, tid
     Route: 065
  2. PREDNISOLONE [Concomitant]
     Indication: RADICULITIS
     Dosage: 5 mg, qd
     Route: 065

REACTIONS (9)
  - Alveolitis [Recovered/Resolved]
  - Tachypnoea [Recovered/Resolved]
  - Tachycardia [Recovered/Resolved]
  - Cyanosis [Recovered/Resolved]
  - Rales [Recovered/Resolved]
  - Respiratory failure [Recovered/Resolved]
  - Lung infiltration [Recovered/Resolved]
  - Carbon monoxide diffusing capacity decreased [Recovered/Resolved]
  - Pyrexia [Recovered/Resolved]
